FAERS Safety Report 5941600-7 (Version None)
Quarter: 2008Q4

REPORT INFORMATION
  Report Type: 
  Country: None (occurrence: None)
  Receive Date: 20081105
  Receipt Date: 20081030
  Transmission Date: 20090506
  Serious: No
  Sender: FDA-Public Use
  Company Number: GB-ASTRAZENECA-2008GB02051

PATIENT

DRUGS (2)
  1. SEROQUEL [Suspect]
     Dosage: 750-800 MG
     Route: 048
  2. METHOTREXATE [Concomitant]
     Indication: ARTHRITIS

REACTIONS (1)
  - WHITE BLOOD CELL COUNT DECREASED [None]
